FAERS Safety Report 20197135 (Version 1)
Quarter: 2021Q4

REPORT INFORMATION
  Report Type: Spontaneous
  Country: PR (occurrence: PR)
  Receive Date: 20211217
  Receipt Date: 20211217
  Transmission Date: 20220303
  Serious: Yes (Hospitalization, Other)
  Sender: FDA-Public Use
  Company Number: PR-BIOVITRUM-2021PR8353

PATIENT
  Age: 6 Month
  Sex: Female

DRUGS (3)
  1. SYNAGIS [Suspect]
     Active Substance: PALIVIZUMAB
     Indication: Premature baby
     Route: 030
     Dates: start: 20210712
  2. SYNAGIS [Suspect]
     Active Substance: PALIVIZUMAB
     Route: 030
     Dates: start: 20211026
  3. Saline Water Therapies [Concomitant]

REACTIONS (3)
  - Bronchiolitis [Unknown]
  - Nasal congestion [Unknown]
  - Secretion discharge [Unknown]

NARRATIVE: CASE EVENT DATE: 20211201
